FAERS Safety Report 9063853 (Version 1)
Quarter: 2013Q1

REPORT INFORMATION
  Report Type: Report from Study
  Country: US (occurrence: US)
  Receive Date: 20130201
  Receipt Date: 20130201
  Transmission Date: 20140127
  Serious: No
  Sender: FDA-Public Use
  Company Number: US-ABBOTT-12P-163-1028215-00

PATIENT
  Age: 54 Year
  Sex: Female

DRUGS (4)
  1. HUMIRA [Suspect]
     Indication: ANKYLOSING SPONDYLITIS
     Dosage: EVERY 2-3 WEEKS DUE TO INSURANCE
  2. LYRICA [Concomitant]
     Indication: NERVOUSNESS
     Dosage: 75MG 1-2 TIMES DAILY
  3. LYRICA [Concomitant]
     Indication: MENTAL IMPAIRMENT
  4. MOBIC [Concomitant]
     Indication: PRODUCT USED FOR UNKNOWN INDICATION

REACTIONS (9)
  - Cervical spinal stenosis [Unknown]
  - Injection site pain [Not Recovered/Not Resolved]
  - Inappropriate schedule of drug administration [Not Recovered/Not Resolved]
  - Injection site mass [Not Recovered/Not Resolved]
  - Injection site warmth [Not Recovered/Not Resolved]
  - Injection site bruising [Unknown]
  - Injection site warmth [Unknown]
  - Injection site pruritus [Unknown]
  - Economic problem [Unknown]
